FAERS Safety Report 23802232 (Version 1)
Quarter: 2024Q2

REPORT INFORMATION
  Report Type: Spontaneous
  Country: US (occurrence: US)
  Receive Date: 20240501
  Receipt Date: 20240501
  Transmission Date: 20240715
  Serious: Yes (Hospitalization, Other)
  Sender: FDA-Public Use
  Company Number: US-CADILA HEALTHCARE LIMITED-US-ZYDUS-105959

PATIENT

DRUGS (1)
  1. LENALIDOMIDE [Suspect]
     Active Substance: LENALIDOMIDE
     Indication: Retroperitoneal cancer
     Dosage: 25 MILLIGRAM, DAILY FOR 14 DAYS Q21D
     Route: 048
     Dates: start: 202403, end: 202404

REACTIONS (3)
  - Pseudomonal sepsis [Recovered/Resolved]
  - Febrile neutropenia [Recovered/Resolved]
  - Product use in unapproved indication [Recovered/Resolved]

NARRATIVE: CASE EVENT DATE: 20240301
